FAERS Safety Report 5334134-4 (Version None)
Quarter: 2007Q2

REPORT INFORMATION
  Report Type: 
  Country: None (occurrence: None)
  Receive Date: 20070525
  Receipt Date: 20070516
  Transmission Date: 20071010
  Serious: Yes (Hospitalization)
  Sender: FDA-Public Use
  Company Number: DE-BAXTER-2007BH004490

PATIENT
  Age: 26 Year
  Sex: Female

DRUGS (1)
  1. EXTRANEAL [Suspect]
     Indication: DIALYSIS
     Dosage: DOSE UNIT:UNKNOWN
     Route: 033
     Dates: start: 20060401, end: 20070507

REACTIONS (4)
  - ABDOMINAL PAIN [None]
  - MALAISE [None]
  - PERITONEAL CLOUDY EFFLUENT [None]
  - PYREXIA [None]
